FAERS Safety Report 23453341 (Version 1)
Quarter: 2024Q1

REPORT INFORMATION
  Report Type: Spontaneous
  Country: US (occurrence: US)
  Receive Date: 20240129
  Receipt Date: 20240129
  Transmission Date: 20240410
  Serious: No
  Sender: FDA-Public Use
  Company Number: US-FreseniusKabi-FK202401445

PATIENT
  Age: 46 Year
  Sex: Male
  Weight: 136 kg

DRUGS (7)
  1. HEPARIN SODIUM [Suspect]
     Active Substance: HEPARIN SODIUM
     Indication: Anticoagulant therapy
     Dosage: 40000 UNITS GIVEN PRE CPB AT 1030
     Dates: start: 20240111
  2. HEPARIN SODIUM [Suspect]
     Active Substance: HEPARIN SODIUM
     Dosage: ADDITIONAL 14000 UNITS GIVEN AT 1042
     Dates: start: 20240111
  3. HEPARIN SODIUM [Suspect]
     Active Substance: HEPARIN SODIUM
     Dosage: INITIATE CPB, ADDITIONAL 10000 UNITS HEPARIN IN CPB PRIME AT 1104
     Dates: start: 20240111
  4. HEPARIN SODIUM [Suspect]
     Active Substance: HEPARIN SODIUM
     Dosage: INITIATE CPB, ADDITIONAL 10000 UNITS HEPARIN IN CPB PRIME AT 1104
     Dates: start: 20240111
  5. HEPARIN SODIUM [Suspect]
     Active Substance: HEPARIN SODIUM
     Dosage: ADDITIONAL 10000 HEPARIN GIVEN AT 1114
     Dates: start: 20240111
  6. HEPARIN SODIUM [Suspect]
     Active Substance: HEPARIN SODIUM
     Dosage: ADDITIONAL 10000 UNITS HEPARIN GIVEN AT 1203
     Dates: start: 20240111
  7. ANTITHROMBIN III HUMAN [Concomitant]
     Active Substance: ANTITHROMBIN III HUMAN
     Indication: Product used for unknown indication
     Dosage: 500 UNITS GIVEN BY ANESTHESIA AT 1100
     Dates: start: 20240111

REACTIONS (1)
  - Drug ineffective [Unknown]

NARRATIVE: CASE EVENT DATE: 20240111
